FAERS Safety Report 10209273 (Version 1)
Quarter: 2014Q2

REPORT INFORMATION
  Report Type: Spontaneous
  Country: SE (occurrence: SE)
  Receive Date: 20140530
  Receipt Date: 20140530
  Transmission Date: 20141212
  Serious: Yes (Death, Life-Threatening)
  Sender: FDA-Public Use
  Company Number: SE-ASTRAZENECA-2014SE36348

PATIENT
  Age: 44 Year
  Sex: Female

DRUGS (5)
  1. MEROPENEM [Suspect]
     Indication: MENINGITIS
     Route: 042
  2. BETAMETHASONE [Suspect]
     Indication: MENINGITIS
     Route: 065
  3. DNP [Suspect]
     Route: 065
  4. CELOCURIN [Concomitant]
     Indication: MUSCLE RIGIDITY
  5. ESMERON [Concomitant]
     Indication: MUSCLE RIGIDITY

REACTIONS (25)
  - Cardiac arrest [Fatal]
  - Muscle rigidity [Unknown]
  - Dyspnoea [None]
  - Depression [None]
  - Myalgia [None]
  - Hyperhidrosis [None]
  - Feeling hot [None]
  - Tachypnoea [None]
  - White blood cell count increased [None]
  - Respiratory alkalosis [None]
  - General physical health deterioration [None]
  - Confusional state [None]
  - Metabolic acidosis [None]
  - Heart rate increased [None]
  - Miosis [None]
  - Overdose [None]
  - Wernicke^s encephalopathy [None]
  - Loss of consciousness [None]
  - Infection [None]
  - Hypertension [None]
  - Hyperthermia [None]
  - Meningitis [None]
  - Toxicity to various agents [None]
  - Toxicity to various agents [None]
  - Endotracheal intubation complication [None]
